FAERS Safety Report 22243710 (Version 1)
Quarter: 2023Q2

REPORT INFORMATION
  Report Type: Spontaneous
  Country: IN (occurrence: IN)
  Receive Date: 20230424
  Receipt Date: 20230424
  Transmission Date: 20230721
  Serious: Yes (Hospitalization, Other)
  Sender: FDA-Public Use
  Company Number: IN-STRIDES ARCOLAB LIMITED-2023SP005608

PATIENT
  Age: 27 Year
  Sex: Female

DRUGS (18)
  1. OLANZAPINE [Suspect]
     Active Substance: OLANZAPINE
     Indication: Delirium
     Dosage: 20 MILLIGRAM (TABLET)
     Route: 048
  2. OLANZAPINE [Suspect]
     Active Substance: OLANZAPINE
     Indication: Mania
     Dosage: 10 MILLIGRAM, BID (TABLET)
     Route: 048
  3. OLANZAPINE [Suspect]
     Active Substance: OLANZAPINE
     Dosage: 20 MILLIGRAM PER DAY (TABLET)
     Route: 048
  4. OLANZAPINE [Suspect]
     Active Substance: OLANZAPINE
     Dosage: 10 MILLIGRAM PER DAY (TABLET)
     Route: 048
  5. CHOLECALCIFEROL [Suspect]
     Active Substance: CHOLECALCIFEROL
     Indication: Vitamin supplementation
     Dosage: UNK
     Route: 065
  6. CYANOCOBALAMIN [Suspect]
     Active Substance: CYANOCOBALAMIN
     Indication: Vitamin supplementation
     Dosage: UNK
     Route: 065
  7. FERROUS GLUCONATE [Suspect]
     Active Substance: FERROUS GLUCONATE
     Indication: Mineral supplementation
     Dosage: UNK
     Route: 065
  8. HALOPERIDOL [Suspect]
     Active Substance: HALOPERIDOL
     Indication: Agitation
     Dosage: UNK, REPEATED DOSES UPTO 20MG (INJECTION)
     Route: 065
  9. DEXAMETHASONE [Suspect]
     Active Substance: DEXAMETHASONE
     Indication: Maternal therapy to enhance foetal lung maturity
     Dosage: 6 MILLIGRAM
     Route: 065
  10. PROGESTERONE [Suspect]
     Active Substance: PROGESTERONE
     Indication: Tocolysis
     Dosage: 200 MILLIGRAM, BID
     Route: 065
  11. RISPERIDONE [Suspect]
     Active Substance: RISPERIDONE
     Indication: Delirium
     Dosage: UP TO 4MG
     Route: 048
  12. RISPERIDONE [Suspect]
     Active Substance: RISPERIDONE
     Indication: Mania
  13. LORAZEPAM [Suspect]
     Active Substance: LORAZEPAM
     Indication: Delirium
     Dosage: 2 MILLIGRAM
     Route: 042
  14. LORAZEPAM [Suspect]
     Active Substance: LORAZEPAM
     Indication: Mania
     Dosage: UNK, TAPERED-OFF DOSAGE
     Route: 042
  15. FOLIC ACID [Suspect]
     Active Substance: FOLIC ACID
     Indication: Vitamin supplementation
     Dosage: UNK
     Route: 065
  16. HYDROXYPROGESTERONE [Suspect]
     Active Substance: HYDROXYPROGESTERONE
     Indication: Tocolysis
     Dosage: 500 MILLIGRAM, ONCE A WEEK (IM HYDROXYPROGESTERONE DEPOT 500MG ONCE WEEKLY)
     Route: 030
  17. SUCCINYLCHOLINE [Suspect]
     Active Substance: SUCCINYLCHOLINE
     Indication: Induction of anaesthesia
     Dosage: 40 MILLIGRAM
     Route: 065
  18. PROPOFOL [Suspect]
     Active Substance: PROPOFOL
     Indication: Induction of anaesthesia
     Dosage: 120 MILLIGRAM
     Route: 065

REACTIONS (5)
  - Premature delivery [Unknown]
  - Therapy non-responder [Unknown]
  - Maternal exposure during pregnancy [Unknown]
  - Maternal exposure during breast feeding [Unknown]
  - Off label use [Unknown]
